FAERS Safety Report 4663952-0 (Version None)
Quarter: 2005Q2

REPORT INFORMATION
  Report Type: 
  Country: None (occurrence: None)
  Receive Date: 20050428
  Receipt Date: 20050118
  Transmission Date: 20051028
  Serious: Yes (Other)
  Sender: FDA-Public Use
  Company Number: US-2004-034582

PATIENT
  Age: 40 Year
  Sex: Female

DRUGS (1)
  1. LEUKINE [Suspect]
     Indication: COLONY STIMULATING FACTOR PROPHYLAXIS
     Dates: start: 20010101, end: 20010101

REACTIONS (1)
  - SCLERAL HAEMORRHAGE [None]
